FAERS Safety Report 8593209-7 (Version None)
Quarter: 2012Q3

REPORT INFORMATION
  Report Type: 
  Country: None (occurrence: None)
  Receive Date: 20120814
  Receipt Date: 20120807
  Transmission Date: 20120928
  Serious: Yes (Other)
  Sender: FDA-Public Use
  Company Number: GB-ABBOTT-12P-167-0961681-00

PATIENT
  Age: 50 Year
  Sex: Male

DRUGS (6)
  1. RISPERDAL [Concomitant]
     Indication: PRODUCT USED FOR UNKNOWN INDICATION
  2. DIAZEPAM [Concomitant]
     Indication: PRODUCT USED FOR UNKNOWN INDICATION
  3. GAVISCON (ALUMINUM HYDROXIDE/MAGNESIUM TRISILICATE) [Concomitant]
     Indication: PRODUCT USED FOR UNKNOWN INDICATION
  4. OMEPRAZOLE [Concomitant]
     Indication: PRODUCT USED FOR UNKNOWN INDICATION
  5. VALPROIC ACID [Suspect]
     Indication: EPILEPSY
     Route: 048
     Dates: end: 20120701
  6. VALPROIC ACID [Suspect]
     Route: 048
     Dates: start: 20120701

REACTIONS (4)
  - CONVULSION [None]
  - ABDOMINAL DISCOMFORT [None]
  - DIARRHOEA [None]
  - MEDICATION RESIDUE [None]
